FAERS Safety Report 9223000 (Version 1)
Quarter: 2013Q2

REPORT INFORMATION
  Report Type: Spontaneous
  Country: US (occurrence: US)
  Receive Date: 20130410
  Receipt Date: 20130410
  Transmission Date: 20140414
  Serious: Yes (Other)
  Sender: FDA-Public Use
  Company Number: US-ASTRAZENECA-2013SE21222

PATIENT
  Sex: Male

DRUGS (4)
  1. NEXIUM [Suspect]
     Indication: GASTROOESOPHAGEAL REFLUX DISEASE
     Route: 048
  2. VERAPAMIL [Concomitant]
     Indication: HYPERTENSION
  3. DIAVAN [Concomitant]
     Indication: HYPERTENSION
     Dosage: 320 25 MG DAILY
  4. HYDROCODONE [Concomitant]
     Indication: PAIN
     Dosage: 10 325 PRN

REACTIONS (19)
  - Neoplasm malignant [Unknown]
  - Weight increased [Unknown]
  - Abdominal distension [Unknown]
  - Weight decreased [Unknown]
  - Muscle spasms [Unknown]
  - Muscle spasms [Unknown]
  - Dysphonia [Unknown]
  - Hearing impaired [Unknown]
  - Arthropathy [Unknown]
  - Intervertebral disc protrusion [Unknown]
  - Arthritis [Unknown]
  - Muscular weakness [Unknown]
  - Dizziness [Unknown]
  - Somnolence [Unknown]
  - Headache [Unknown]
  - Flatulence [Unknown]
  - Nausea [Unknown]
  - Abdominal pain [Unknown]
  - Intentional drug misuse [Unknown]
